FAERS Safety Report 4512684-8 (Version None)
Quarter: 2004Q4

REPORT INFORMATION
  Report Type: 
  Country: None (occurrence: None)
  Receive Date: 20041012
  Receipt Date: 20040901
  Transmission Date: 20050328
  Serious: No
  Sender: FDA-Public Use
  Company Number: A03200403051

PATIENT
  Sex: Male

DRUGS (4)
  1. UROXATRAL [Suspect]
     Dosage: ORAL
     Route: 048
     Dates: start: 20040801
  2. FINASTERIDE [Concomitant]
  3. AMIODARONE HCL [Concomitant]
  4. LISINOPRIL [Concomitant]

REACTIONS (3)
  - BLOOD PRESSURE DECREASED [None]
  - FEELING ABNORMAL [None]
  - SWEAT GLAND DISORDER [None]
